FAERS Safety Report 5144473-8 (Version None)
Quarter: 2006Q4

REPORT INFORMATION
  Report Type: 
  Country: None (occurrence: None)
  Receive Date: 20061106
  Receipt Date: 20061030
  Transmission Date: 20070319
  Serious: Yes (Other)
  Sender: FDA-Public Use
  Company Number: JP-ROXANE LABORATORIES, INC-2006-BP-12709RO

PATIENT
  Age: 21 Year
  Sex: Male

DRUGS (3)
  1. DEXAMETHASONE TAB [Suspect]
     Indication: PRECURSOR T-LYMPHOBLASTIC LYMPHOMA/LEUKAEMIA STAGE IV
     Dosage: TOTAL DOSE = 224 MG OVER 35 DAYS
     Dates: start: 20040304, end: 20040418
  2. PREDNISOLONE [Suspect]
     Indication: PRECURSOR T-LYMPHOBLASTIC LYMPHOMA/LEUKAEMIA STAGE IV
     Dosage: TOTAL DOSE = 1680 MG OVER 35 DAYS
     Dates: start: 20040304, end: 20040418
  3. GLYCYRRHIZIN [Concomitant]
     Indication: LIVER DISORDER
     Dates: start: 20040405

REACTIONS (5)
  - ALANINE AMINOTRANSFERASE INCREASED [None]
  - ASPARTATE AMINOTRANSFERASE INCREASED [None]
  - BLOOD BILIRUBIN INCREASED [None]
  - HEPATIC STEATOSIS [None]
  - LIVER DISORDER [None]
